FAERS Safety Report 19974619 (Version 1)
Quarter: 2021Q4

REPORT INFORMATION
  Report Type: Report from Study
  Country: MX (occurrence: MX)
  Receive Date: 20211020
  Receipt Date: 20211020
  Transmission Date: 20220303
  Serious: Yes (Other)
  Sender: FDA-Public Use
  Company Number: MX-NOVARTISPH-NVSC2021MX239379

PATIENT
  Age: 52 Year
  Sex: Female
  Weight: 78 kg

DRUGS (3)
  1. DIOVAN [Suspect]
     Active Substance: VALSARTAN
     Indication: Hypertension
     Dosage: 1 DF (80 MG), QD
     Route: 048
     Dates: start: 201901
  2. DIOVAN [Suspect]
     Active Substance: VALSARTAN
     Dosage: 1 DF (AS REPORTED)
     Route: 048
  3. FEMME [Concomitant]
     Indication: Product used for unknown indication
     Dosage: 1 DF, QD
     Route: 048
     Dates: start: 202107

REACTIONS (5)
  - Arrhythmia [Recovered/Resolved]
  - Hot flush [Recovering/Resolving]
  - Gingival pain [Recovered/Resolved]
  - Decreased appetite [Not Recovered/Not Resolved]
  - Dyspnoea [Recovered/Resolved]

NARRATIVE: CASE EVENT DATE: 20210301
